APPROVED DRUG PRODUCT: VENLAFAXINE HYDROCHLORIDE
Active Ingredient: VENLAFAXINE HYDROCHLORIDE
Strength: EQ 150MG BASE
Dosage Form/Route: TABLET, EXTENDED RELEASE;ORAL
Application: A214423 | Product #002
Applicant: SWISS PHARMACEUTICAL CO LTD
Approved: Jan 4, 2022 | RLD: No | RS: No | Type: DISCN